FAERS Safety Report 6039847-7 (Version None)
Quarter: 2009Q1

REPORT INFORMATION
  Report Type: 
  Country: None (occurrence: None)
  Receive Date: 20090116
  Receipt Date: 20090105
  Transmission Date: 20090719
  Serious: Yes (Hospitalization, Other)
  Sender: FDA-Public Use
  Company Number: CH-WYE-G02874909

PATIENT
  Age: 72 Year
  Sex: Female
  Weight: 61.4 kg

DRUGS (5)
  1. EFFEXOR [Suspect]
     Indication: DEPRESSION
     Dosage: UNKNOWN
     Route: 048
     Dates: end: 20081001
  2. EFFEXOR [Suspect]
     Route: 048
     Dates: start: 20081001, end: 20081001
  3. EFFEXOR [Suspect]
     Route: 048
     Dates: start: 20081001, end: 20081101
  4. EFFEXOR [Suspect]
     Dosage: TAPERING OFF
     Dates: start: 20081101, end: 20081127
  5. METOPROLOL TARTRATE [Concomitant]
     Route: 048

REACTIONS (19)
  - AGNOSIA [None]
  - ANTIDEPRESSANT DRUG LEVEL INCREASED [None]
  - CEREBRAL VENTRICLE DILATATION [None]
  - COGNITIVE DISORDER [None]
  - CREATININE RENAL CLEARANCE DECREASED [None]
  - CRYING [None]
  - DELUSION OF REPLACEMENT [None]
  - DEMENTIA ALZHEIMER'S TYPE [None]
  - DISINHIBITION [None]
  - DISORIENTATION [None]
  - DRUG INEFFECTIVE [None]
  - DRUG TOXICITY [None]
  - EXPRESSIVE LANGUAGE DISORDER [None]
  - FALL [None]
  - GAIT DISTURBANCE [None]
  - GENERAL PHYSICAL HEALTH DETERIORATION [None]
  - MEMORY IMPAIRMENT [None]
  - MUSCLE RIGIDITY [None]
  - NORMAL PRESSURE HYDROCEPHALUS [None]
